FAERS Safety Report 19233458 (Version 1)
Quarter: 2021Q2

REPORT INFORMATION
  Report Type: Spontaneous
  Country: US (occurrence: US)
  Receive Date: 20210507
  Receipt Date: 20210507
  Transmission Date: 20210717
  Serious: Yes (Hospitalization, Other)
  Sender: FDA-Public Use
  Company Number: US-GLAXOSMITHKLINE-US2021096571

PATIENT
  Age: 54 Year
  Sex: Male

DRUGS (2)
  1. TRELEGY ELLIPTA [Suspect]
     Active Substance: FLUTICASONE FUROATE\UMECLIDINIUM BROMIDE\VILANTEROL TRIFENATATE
     Indication: CHRONIC OBSTRUCTIVE PULMONARY DISEASE
     Dosage: 1 PUFF(S), QD 100?62.5
     Dates: start: 201909
  2. VENTOLIN HFA [Suspect]
     Active Substance: ALBUTEROL SULFATE
     Indication: DYSPNOEA
     Dosage: 1 TO 2 PUFFS BY MOUTH EVERY 4
     Dates: start: 201909

REACTIONS (3)
  - Fall [Unknown]
  - Pneumonia [Recovered/Resolved]
  - Rib fracture [Unknown]

NARRATIVE: CASE EVENT DATE: 202104
